FAERS Safety Report 6246406-X (Version None)
Quarter: 2009Q2

REPORT INFORMATION
  Report Type: 
  Country: None (occurrence: None)
  Receive Date: 20090626
  Receipt Date: 20090624
  Transmission Date: 20091009
  Serious: Yes (Life-Threatening)
  Sender: FDA-Public Use
  Company Number: AU-ASTRAZENECA-2009SE03207

PATIENT
  Age: 52 Year
  Sex: Female

DRUGS (1)
  1. ACIMAX [Suspect]
     Indication: OESOPHAGEAL DISORDER
     Route: 065
     Dates: start: 20070915, end: 20071226

REACTIONS (1)
  - HEPATIC FUNCTION ABNORMAL [None]
